FAERS Safety Report 6238497-7 (Version None)
Quarter: 2009Q2

REPORT INFORMATION
  Report Type: 
  Country: None (occurrence: None)
  Receive Date: 20090622
  Receipt Date: 20090610
  Transmission Date: 20091009
  Serious: Yes (Other)
  Sender: FDA-Public Use
  Company Number: US-ROCHE-638638

PATIENT
  Age: 48 Year

DRUGS (7)
  1. MYCOPHENOLATE MOFETIL [Suspect]
     Indication: PROPHYLAXIS
     Route: 065
  2. PROGRAF [Suspect]
     Indication: TRANSPLANT
     Route: 065
  3. ANTI-THYMOCYTE GLOBULIN NOS [Suspect]
     Indication: TRANSPLANT
     Route: 065
  4. SIROLIMUS [Suspect]
     Indication: TRANSPLANT
     Route: 065
  5. METHYLPREDNISOLONE [Suspect]
     Indication: TRANSPLANT
     Route: 065
  6. PREDNISOLONE [Suspect]
     Indication: TRANSPLANT
     Route: 065
  7. PREDNISOLONE [Suspect]
     Route: 065

REACTIONS (5)
  - CYTOMEGALOVIRUS INFECTION [None]
  - DIABETES MELLITUS [None]
  - NASOPHARYNGITIS [None]
  - NEPHROPATHY TOXIC [None]
  - TRANSPLANT REJECTION [None]
